FAERS Safety Report 6931278-8 (Version None)
Quarter: 2010Q3

REPORT INFORMATION
  Report Type: 
  Country: None (occurrence: None)
  Receive Date: 20100816
  Receipt Date: 20100806
  Transmission Date: 20110219
  Serious: Yes (Hospitalization)
  Sender: FDA-Public Use
  Company Number: 2010SP042836

PATIENT
  Age: 35 Year
  Sex: Male

DRUGS (5)
  1. MIRTAZAPINE [Suspect]
     Indication: ESSENTIAL HYPERTENSION
     Dosage: 30 MG;QD;PO
     Route: 048
  2. CITALOPRAM HYDROBROMIDE [Suspect]
     Indication: DEPRESSION
     Dosage: 60 MG;QD;PO
     Route: 048
  3. QUETIAPINE [Suspect]
     Indication: ANXIETY DISORDER
     Dosage: 250 MG;QID;PO
     Route: 048
  4. DIAZEPAM [Concomitant]
  5. LORAZEPAM [Concomitant]

REACTIONS (1)
  - NEUROLEPTIC MALIGNANT SYNDROME [None]
